FAERS Safety Report 5646910-9 (Version None)
Quarter: 2008Q1

REPORT INFORMATION
  Report Type: 
  Country: None (occurrence: None)
  Receive Date: 20080303
  Receipt Date: 20080221
  Transmission Date: 20080703
  Serious: Yes (Other)
  Sender: FDA-Public Use
  Company Number: FI-ELI_LILLY_AND_COMPANY-FI200802004929

PATIENT
  Age: 76 Year
  Sex: Female

DRUGS (5)
  1. FORTEO [Suspect]
     Indication: OSTEOPOROSIS
     Dosage: 20 UG, DAILY (1/D)
     Route: 058
     Dates: start: 20070601
  2. ESTROGEN NOS [Concomitant]
     Dosage: UNK, UNKNOWN
     Dates: start: 19780101
  3. SELOKEN /00376902/ [Concomitant]
     Dosage: UNK, UNKNOWN
     Dates: start: 19830101
  4. CALCIUM [Concomitant]
     Dosage: UNK, UNKNOWN
  5. VITAMIN D [Concomitant]
     Dosage: UNK, UNKNOWN

REACTIONS (2)
  - BREAST CANCER [None]
  - FATIGUE [None]
